FAERS Safety Report 7832507-9 (Version None)
Quarter: 2011Q4

REPORT INFORMATION
  Report Type: 
  Country: None (occurrence: None)
  Receive Date: 20111024
  Receipt Date: 20111014
  Transmission Date: 20120403
  Serious: Yes (Hospitalization)
  Sender: FDA-Public Use
  Company Number: US-BIOGENIDEC-2010BI030214

PATIENT
  Age: 35 Year
  Sex: Female

DRUGS (2)
  1. TYSABRI [Suspect]
     Indication: MULTIPLE SCLEROSIS
     Route: 042
     Dates: start: 20080711, end: 20090428
  2. TYSABRI [Suspect]
     Route: 042
     Dates: start: 20090918

REACTIONS (2)
  - OOPHORECTOMY [None]
  - UTERINE LEIOMYOMA [None]
